FAERS Safety Report 8838469 (Version 2)
Quarter: 2012Q4

REPORT INFORMATION
  Report Type: 
  Country: GB (occurrence: GB)
  Receive Date: 20121012
  Receipt Date: 20121113
  Transmission Date: 20130627
  Serious: Yes (Other)
  Sender: FDA-Public Use
  Company Number: GB-VERTEX PHARMACEUTICAL INC.-2012-021734

PATIENT
  Age: 44 Year
  Sex: Male

DRUGS (5)
  1. VX-950 (TELAPREVIR) [Suspect]
     Indication: HEPATITIS C
     Dosage: Dosage form: tablet 750 mg, Every 8 hour
     Route: 048
     Dates: start: 20120905
  2. RIBAVIRIN [Suspect]
     Indication: HEPATITIS C
     Dosage: 2 DF, bid
     Route: 048
     Dates: start: 20120905
  3. RIBAVIRIN [Suspect]
     Dosage: Dosage Form: Unknown
     Route: 048
     Dates: start: 20120905
  4. PEG INTERFERON [Suspect]
     Indication: HEPATITIS C
     Dosage: One dose once a week
     Route: 058
     Dates: start: 20120905
  5. UNKNOWN MEDICATION [Concomitant]
     Indication: CROHN^S DISEASE
     Dosage: UNK
     Route: 065

REACTIONS (5)
  - Dyspnoea [Not Recovered/Not Resolved]
  - Haemoglobin decreased [Not Recovered/Not Resolved]
  - Headache [Not Recovered/Not Resolved]
  - Pruritus [Not Recovered/Not Resolved]
  - Rash [Not Recovered/Not Resolved]
